FAERS Safety Report 7424540-6 (Version None)
Quarter: 2011Q2

REPORT INFORMATION
  Report Type: 
  Country: None (occurrence: None)
  Receive Date: 20110411
  Receipt Date: 20110326
  Transmission Date: 20111010
  Serious: Yes (Other)
  Sender: FDA-Public Use
  Company Number: 2010AP002039

PATIENT
  Age: 67 Year
  Sex: Male

DRUGS (5)
  1. TACROLIMUS [Suspect]
     Indication: IMMUNOSUPPRESSION
     Dosage: 1.5 MG;QD ; 0.5 MG;QD
  2. ACICLOVIR [Suspect]
     Indication: PRODUCT USED FOR UNKNOWN INDICATION
  3. POSACONAZOLE [Suspect]
     Indication: PRODUCT USED FOR UNKNOWN INDICATION
  4. MYCOPHENOLATE MOFETIL [Suspect]
     Indication: IMMUNOSUPPRESSION
     Dosage: 2000 MG;QD ; 1000 MG;QD
  5. PREDNISONE [Suspect]
     Indication: PRODUCT USED FOR UNKNOWN INDICATION
     Dosage: 80 MG;QD ; 10 MG;QD ; 5 MG;QD

REACTIONS (2)
  - PANCYTOPENIA [None]
  - NEUTROPHIL PELGER-HUET ANOMALY PRESENT [None]
